FAERS Safety Report 4450557-X (Version None)
Quarter: 2004Q3

REPORT INFORMATION
  Report Type: 
  Country: None (occurrence: None)
  Receive Date: 20040914
  Receipt Date: 20040903
  Transmission Date: 20050211
  Serious: Yes (Death, Hospitalization)
  Sender: FDA-Public Use
  Company Number: 040044

PATIENT
  Age: 54 Year
  Sex: Male

DRUGS (9)
  1. MIRALAX [Suspect]
     Indication: CONSTIPATION
     Dosage: 2 DOSES PO
     Route: 048
     Dates: start: 20040620
  2. VICODIN [Concomitant]
  3. DIGOXIN [Concomitant]
  4. SIMVASTATIN [Concomitant]
  5. CARVEDILOL [Concomitant]
  6. FENTANYL [Concomitant]
  7. DEXAMETHASONE [Concomitant]
  8. TOPOTECAN (STUDY MED) [Concomitant]
  9. TAXOTERE (STUDY MED) [Concomitant]

REACTIONS (11)
  - ANOREXIA [None]
  - ASTHENIA [None]
  - BALANCE DISORDER [None]
  - CONFUSIONAL STATE [None]
  - DEHYDRATION [None]
  - DIARRHOEA [None]
  - DISEASE PROGRESSION [None]
  - DRY MOUTH [None]
  - HYPOTENSION [None]
  - INFECTION [None]
  - MEDICATION ERROR [None]
